FAERS Safety Report 5014521-4 (Version None)
Quarter: 2006Q2

REPORT INFORMATION
  Report Type: 
  Country: None (occurrence: None)
  Receive Date: 20060531
  Receipt Date: 20060519
  Transmission Date: 20061013
  Serious: Yes (Congenital Anomaly, Other)
  Sender: FDA-Public Use
  Company Number: US-GILEAD-2006-0009607

PATIENT
  Sex: Male
  Weight: 3 kg

DRUGS (9)
  1. TRUVADA [Suspect]
     Indication: HIV INFECTION
     Route: 064
     Dates: start: 20040316, end: 20050330
  2. NORVIR [Concomitant]
     Indication: HIV INFECTION
     Route: 064
     Dates: start: 20040316, end: 20050330
  3. REYATAZ [Concomitant]
     Indication: HIV INFECTION
     Route: 064
     Dates: start: 20040316, end: 20050330
  4. KALETRA [Concomitant]
     Indication: HIV INFECTION
     Route: 064
     Dates: start: 20050330, end: 20050525
  5. TRIZIVIR [Concomitant]
     Indication: HIV INFECTION
     Route: 064
     Dates: start: 20050330, end: 20050525
  6. VIRACEPT [Concomitant]
     Indication: HIV INFECTION
     Route: 064
     Dates: start: 20050603, end: 20051227
  7. COMBIVIR [Concomitant]
     Indication: HIV INFECTION
     Route: 064
     Dates: start: 20050603, end: 20051227
  8. ZIDOVUDINE [Concomitant]
     Route: 064
     Dates: start: 20051103, end: 20051103
  9. ZIDOVUDINE [Concomitant]
     Route: 064
     Dates: start: 20051103, end: 20051103

REACTIONS (4)
  - CONVULSION [None]
  - DRUG EXPOSURE BEFORE PREGNANCY [None]
  - PREMATURE BABY [None]
  - TRISOMY 15 [None]
